FAERS Safety Report 4853833-1 (Version None)
Quarter: 2005Q4

REPORT INFORMATION
  Report Type: 
  Country: None (occurrence: None)
  Receive Date: 20051213
  Receipt Date: 20051201
  Transmission Date: 20060501
  Serious: Yes (Hospitalization)
  Sender: FDA-Public Use
  Company Number: US-2005-025469

PATIENT
  Age: 42 Year
  Sex: Male

DRUGS (1)
  1. BETASERON [Suspect]
     Indication: MULTIPLE SCLEROSIS
     Dosage: DOSE NOT PROVIDED; SUBCUTANEOUS
     Route: 058
     Dates: start: 20040223

REACTIONS (3)
  - BACK PAIN [None]
  - PYREXIA [None]
  - SHOULDER PAIN [None]
